FAERS Safety Report 7383952-X (Version None)
Quarter: 2011Q1

REPORT INFORMATION
  Report Type: 
  Country: None (occurrence: None)
  Receive Date: 20110330
  Receipt Date: 20110204
  Transmission Date: 20110831
  Serious: No
  Sender: FDA-Public Use
  Company Number: US-MYLANLABS-2011S1002600

PATIENT
  Age: 61 Year
  Sex: Male

DRUGS (1)
  1. TOPIRAMATE [Suspect]
     Indication: CLUSTER HEADACHE
     Route: 048
     Dates: start: 20110101, end: 20110101

REACTIONS (2)
  - CLUSTER HEADACHE [None]
  - DRUG INEFFECTIVE FOR UNAPPROVED INDICATION [None]
